FAERS Safety Report 26100041 (Version 1)
Quarter: 2025Q4

REPORT INFORMATION
  Report Type: Spontaneous
  Country: US (occurrence: US)
  Receive Date: 20251128
  Receipt Date: 20251128
  Transmission Date: 20260117
  Serious: Yes (Other)
  Sender: AMGEN
  Company Number: US-AMGEN-USASP2025230756

PATIENT
  Age: 40 Year
  Sex: Male

DRUGS (6)
  1. RITUXIMAB [Suspect]
     Active Substance: RITUXIMAB
     Indication: ADAMTS13 activity decreased
     Dosage: 375 MILLIGRAM/SQ. METER, QWK, FOR 4 WEEKS
     Route: 065
  2. PREDNISONE [Suspect]
     Active Substance: PREDNISONE
     Indication: ADAMTS13 activity decreased
     Dosage: 1 MILLIGRAM/KILOGRAM, QD (6 WEEKS WITH TAPER)
     Route: 065
  3. ASPIRIN [Concomitant]
     Active Substance: ASPIRIN
  4. APIXABAN [Concomitant]
     Active Substance: APIXABAN
  5. CAPLACIZUMAB [Concomitant]
     Active Substance: CAPLACIZUMAB
  6. BORTEZOMIB [Concomitant]
     Active Substance: BORTEZOMIB

REACTIONS (4)
  - HIV infection [Unknown]
  - Renal impairment [Unknown]
  - Drug ineffective for unapproved indication [Unknown]
  - Off label use [Unknown]
